FAERS Safety Report 9025964 (Version 1)
Quarter: 2013Q1

REPORT INFORMATION
  Report Type: Spontaneous
  Country: GB (occurrence: None)
  Receive Date: 20130104
  Receipt Date: 20130104
  Transmission Date: 20140127
  Serious: Yes (Disabling)
  Sender: FDA-Public Use
  Company Number: AUR-APL-2012-05632

PATIENT
  Age: 60 Year
  Sex: Female
  Weight: 65.31 kg

DRUGS (2)
  1. AMOXICILLIN (AMOXICILLIN) [Suspect]
     Indication: DIZZINESS
     Dates: start: 20101004
  2. ARLEVERT [Suspect]
     Dates: start: 20101004

REACTIONS (3)
  - Tinnitus [None]
  - Hypoacusis [None]
  - Pain [None]
